FAERS Safety Report 18498560 (Version 2)
Quarter: 2021Q1

REPORT INFORMATION
  Report Type: Report from Study
  Country: None (occurrence: US)
  Receive Date: 20201113
  Receipt Date: 20210221
  Transmission Date: 20210419
  Serious: Yes (Other)
  Sender: FDA-Public Use
  Company Number: US-ABBVIE-20K-163-3540447-00

PATIENT
  Sex: Male

DRUGS (2)
  1. HUMIRA [Suspect]
     Active Substance: ADALIMUMAB
     Route: 058
     Dates: start: 2020
  2. HUMIRA [Suspect]
     Active Substance: ADALIMUMAB
     Indication: RHEUMATOID ARTHRITIS
     Route: 058
     Dates: start: 20200416, end: 2020

REACTIONS (16)
  - Asthenia [Unknown]
  - Arthralgia [Recovering/Resolving]
  - Joint stiffness [Recovering/Resolving]
  - Intervertebral disc protrusion [Unknown]
  - Paraesthesia [Recovered/Resolved]
  - Gait disturbance [Not Recovered/Not Resolved]
  - Loss of personal independence in daily activities [Unknown]
  - Arthropathy [Unknown]
  - Pain [Recovering/Resolving]
  - Pain in extremity [Unknown]
  - Joint swelling [Recovering/Resolving]
  - Frustration tolerance decreased [Unknown]
  - Back pain [Unknown]
  - Pain [Unknown]
  - Paraesthesia [Unknown]
  - Arthralgia [Not Recovered/Not Resolved]

NARRATIVE: CASE EVENT DATE: 2020
